FAERS Safety Report 21481165 (Version 1)
Quarter: 2022Q4

REPORT INFORMATION
  Report Type: Spontaneous
  Country: US (occurrence: None)
  Receive Date: 20221019
  Receipt Date: 20221019
  Transmission Date: 20230112
  Serious: Yes (Hospitalization)
  Sender: FDA-Public Use
  Company Number: None

PATIENT
  Age: 41 Year
  Sex: Male
  Weight: 99.8 kg

DRUGS (1)
  1. METHOTREXATE [Suspect]
     Active Substance: METHOTREXATE
     Dates: end: 20220819

REACTIONS (6)
  - Toxicity to various agents [None]
  - Arthralgia [None]
  - Myalgia [None]
  - Acute kidney injury [None]
  - Muscle spasms [None]
  - Drug level decreased [None]

NARRATIVE: CASE EVENT DATE: 20220822
